FAERS Safety Report 7147494-9 (Version None)
Quarter: 2010Q4

REPORT INFORMATION
  Report Type: 
  Country: None (occurrence: None)
  Receive Date: 20101209
  Receipt Date: 20101129
  Transmission Date: 20110411
  Serious: Yes (Hospitalization)
  Sender: FDA-Public Use
  Company Number: US-BIOGENIDEC-2010BI039594

PATIENT
  Age: 55 Year
  Sex: Male

DRUGS (13)
  1. AVONEX [Suspect]
     Indication: MULTIPLE SCLEROSIS
     Route: 030
     Dates: start: 20100101
  2. METFORMIN [Concomitant]
     Route: 048
  3. CARVEDILOL [Concomitant]
     Route: 048
  4. LISINOPRIL [Concomitant]
     Route: 048
  5. ALENDRONATE [Concomitant]
     Route: 048
  6. SIMVASTATIN [Concomitant]
     Route: 048
  7. INSULIN GLARGINE 100 UNIT/ML [Concomitant]
     Dosage: DOSE UNIT:24
     Route: 058
  8. INSULIN ASPART 100 UNIT/ML [Concomitant]
     Dosage: DOSE UNIT:6
     Route: 058
  9. TIZANIDINE [Concomitant]
     Route: 048
  10. ACETAMINOPHEN [Concomitant]
     Route: 048
  11. METHOCARBAMOL [Concomitant]
     Route: 048
  12. FAMOTIDINE [Concomitant]
     Route: 048
  13. LIDOCAINE [Concomitant]
     Route: 061

REACTIONS (5)
  - ATRIAL FLUTTER [None]
  - CORONARY ARTERY DISEASE [None]
  - INTERVERTEBRAL DISC PROTRUSION [None]
  - MUSCLE SPASMS [None]
  - MYOCARDIAL ISCHAEMIA [None]
